FAERS Safety Report 5252157-0 (Version None)
Quarter: 2007Q1

REPORT INFORMATION
  Report Type: 
  Country: None (occurrence: None)
  Receive Date: 20070226
  Receipt Date: 20070209
  Transmission Date: 20070707
  Serious: Yes (Hospitalization)
  Sender: FDA-Public Use
  Company Number: 010682

PATIENT
  Age: 86 Year
  Sex: Female
  Weight: 38.5 kg

DRUGS (6)
  1. MIRTAZAPINE [Suspect]
     Indication: DEPRESSION
     Dosage: 30 MG, QHS; ORAL; 30 MG QHS; ORAL
     Route: 048
     Dates: start: 20060601, end: 20061220
  2. MIRTAZAPINE [Suspect]
     Indication: DEPRESSION
     Dosage: 30 MG, QHS; ORAL; 30 MG QHS; ORAL
     Route: 048
     Dates: start: 20070208, end: 20070211
  3. MAXZIDE [Suspect]
     Dosage: ORAL
     Route: 048
     Dates: start: 19990101, end: 20061220
  4. NAMENDA [Concomitant]
  5. ALBUTEROL [Concomitant]
  6. ARICEPT [Concomitant]

REACTIONS (10)
  - ASTHMA [None]
  - CLOSTRIDIUM COLITIS [None]
  - DEMENTIA [None]
  - DEPRESSION [None]
  - FALL [None]
  - HIP ARTHROPLASTY [None]
  - KIDNEY INFECTION [None]
  - PULMONARY OEDEMA [None]
  - SUICIDAL IDEATION [None]
  - SUICIDE ATTEMPT [None]
